FAERS Safety Report 6197232-1 (Version None)
Quarter: 2009Q2

REPORT INFORMATION
  Report Type: 
  Country: None (occurrence: None)
  Receive Date: 20090521
  Receipt Date: 20070515
  Transmission Date: 20091009
  Serious: Yes (Life-Threatening, Hospitalization, Disabling, Other)
  Sender: FDA-Public Use
  Company Number: US-ASTRAZENECA-2006UW00874

PATIENT
  Age: 568 Month
  Sex: Male
  Weight: 73.9 kg

DRUGS (35)
  1. SEROQUEL [Suspect]
     Indication: DEPRESSION
     Dates: start: 20020101, end: 20050101
  2. SEROQUEL [Suspect]
     Indication: BIPOLAR DISORDER
     Dates: start: 20020101, end: 20050101
  3. SEROQUEL [Suspect]
     Route: 048
     Dates: start: 20030201, end: 20061204
  4. SEROQUEL [Suspect]
     Route: 048
     Dates: start: 20030201, end: 20061204
  5. SEROQUEL [Suspect]
     Dosage: 100MG TO 300MG
     Route: 048
     Dates: start: 20020302
  6. SEROQUEL [Suspect]
     Dosage: 100MG TO 300MG
     Route: 048
     Dates: start: 20020302
  7. ZYPREXA [Suspect]
     Route: 048
     Dates: start: 20021012
  8. HALDOL [Suspect]
     Route: 048
     Dates: start: 20021012
  9. LITHIUM [Concomitant]
  10. WELLBUTRIN [Concomitant]
  11. ABILIFY [Concomitant]
  12. FOLATE [Concomitant]
     Route: 065
  13. SYNTHROID [Concomitant]
     Route: 065
  14. REMERON [Concomitant]
     Route: 048
  15. ALLOPURINOL [Concomitant]
     Route: 048
  16. BEXTRA [Concomitant]
     Route: 048
  17. GLUCOPHAGE [Concomitant]
     Route: 065
  18. BECONASE [Concomitant]
     Dosage: 2 SPRAYS IN EACH NOSTRIL DAILY
     Route: 045
  19. PRILOSEC [Concomitant]
     Route: 065
  20. INDERAL [Concomitant]
     Dosage: 20 MG - 60 MG DAILY
     Route: 048
  21. TOPAMAX [Concomitant]
     Route: 065
  22. AMBIEN [Concomitant]
     Route: 065
  23. XANAX [Concomitant]
     Route: 065
  24. NEURONTIN [Concomitant]
     Dosage: 300 MG - 1200 MG DAILY
     Route: 048
  25. ATENOLOL [Concomitant]
     Route: 065
  26. TRILEPTAL [Concomitant]
     Route: 065
  27. TEQUIN [Concomitant]
     Route: 065
  28. CARISOPRODOL [Concomitant]
     Route: 065
  29. CYCLOBENZAPRINE [Concomitant]
     Route: 065
  30. NAPROXEN [Concomitant]
     Route: 065
  31. COLCHICINE [Concomitant]
     Route: 065
  32. GABITRIL [Concomitant]
     Route: 065
  33. VISTARIL [Concomitant]
     Route: 030
  34. LOTENSIN [Concomitant]
     Route: 048
  35. BUSPAR [Concomitant]
     Dosage: 3 TABLETS DAILY
     Route: 065

REACTIONS (47)
  - ABSCESS [None]
  - AKINESIA [None]
  - ALCOHOL POISONING [None]
  - ANAEMIA [None]
  - ANOREXIA [None]
  - BIPOLAR DISORDER [None]
  - BURSITIS [None]
  - CATARACT NUCLEAR [None]
  - COUGH [None]
  - DEHYDRATION [None]
  - DEPRESSION [None]
  - DIABETIC KETOACIDOSIS [None]
  - DIABETIC NEUROPATHIC ULCER [None]
  - DIZZINESS [None]
  - DRY EYE [None]
  - ESSENTIAL HYPERTENSION [None]
  - ESSENTIAL TREMOR [None]
  - EXCORIATION [None]
  - FOOT DEFORMITY [None]
  - GASTROOESOPHAGEAL REFLUX DISEASE [None]
  - HALLUCINATION [None]
  - HYPERURICAEMIA [None]
  - HYPOAESTHESIA [None]
  - HYPOTHYROIDISM [None]
  - LOCALISED INFECTION [None]
  - MANIA [None]
  - MUSCLE SPASMS [None]
  - MUSCULOSKELETAL PAIN [None]
  - NASAL CONGESTION [None]
  - NEUROPATHY PERIPHERAL [None]
  - ORTHOSTATIC HYPOTENSION [None]
  - OSTEOMYELITIS [None]
  - PNEUMONIA [None]
  - PNEUMOTHORAX TRAUMATIC [None]
  - PYREXIA [None]
  - RESPIRATORY FAILURE [None]
  - RIB FRACTURE [None]
  - ROTATOR CUFF SYNDROME [None]
  - SEBORRHOEIC DERMATITIS [None]
  - SKIN LESION [None]
  - SKIN ULCER [None]
  - SUICIDAL IDEATION [None]
  - TYPE 2 DIABETES MELLITUS [None]
  - URINARY TRACT INFECTION [None]
  - VOMITING [None]
  - WEIGHT DECREASED [None]
  - WEIGHT INCREASED [None]
